FAERS Safety Report 6431247-0 (Version None)
Quarter: 2009Q4

REPORT INFORMATION
  Report Type: 
  Country: None (occurrence: None)
  Receive Date: 20091106
  Receipt Date: 20091026
  Transmission Date: 20100525
  Serious: Yes (Other)
  Sender: FDA-Public Use
  Company Number: US-PFIZER INC-2009290013

PATIENT
  Sex: Female

DRUGS (2)
  1. GEODON [Suspect]
  2. SEROQUEL [Suspect]

REACTIONS (8)
  - ALTERED STATE OF CONSCIOUSNESS [None]
  - APHASIA [None]
  - CONFUSIONAL STATE [None]
  - DYSARTHRIA [None]
  - EYE DISORDER [None]
  - INSOMNIA [None]
  - LETHARGY [None]
  - SOMNOLENCE [None]
